FAERS Safety Report 23820526 (Version 1)
Quarter: 2024Q2

REPORT INFORMATION
  Report Type: Spontaneous
  Country: DE (occurrence: DE)
  Receive Date: 20240506
  Receipt Date: 20240506
  Transmission Date: 20240716
  Serious: Yes (Hospitalization, Other)
  Sender: FDA-Public Use
  Company Number: None

PATIENT
  Age: 81 Year
  Sex: Male

DRUGS (1)
  1. EYLEA [Suspect]
     Active Substance: AFLIBERCEPT
     Indication: Age-related macular degeneration
     Dosage: SOLUTION FOR INJECTION, 40MG/ML
     Route: 031
     Dates: start: 20240409, end: 20240409

REACTIONS (8)
  - Vomiting [Recovered/Resolved with Sequelae]
  - Headache [Recovered/Resolved with Sequelae]
  - Blindness [Recovered/Resolved with Sequelae]
  - Nausea [Recovered/Resolved with Sequelae]
  - Endophthalmitis [Recovered/Resolved with Sequelae]
  - Hypopyon [Recovered/Resolved with Sequelae]
  - Beta haemolytic streptococcal infection [Recovered/Resolved with Sequelae]
  - Vitreous fibrin [Recovered/Resolved with Sequelae]

NARRATIVE: CASE EVENT DATE: 20240410
